FAERS Safety Report 4812526-7 (Version None)
Quarter: 2005Q4

REPORT INFORMATION
  Report Type: 
  Country: None (occurrence: None)
  Receive Date: 20051028
  Receipt Date: 20041028
  Transmission Date: 20060501
  Serious: No
  Sender: FDA-Public Use
  Company Number: US-GLAXOSMITHKLINE-A0531776A

PATIENT
  Age: 76 Year
  Sex: Male

DRUGS (9)
  1. ADVAIR DISKUS 100/50 [Suspect]
     Indication: CHRONIC OBSTRUCTIVE PULMONARY DISEASE
     Dosage: 1PUFF TWICE PER DAY
     Route: 055
     Dates: start: 20010101
  2. PRAVACHOL [Concomitant]
  3. HYTRIN [Concomitant]
  4. TOPROL-XL [Concomitant]
  5. ASPIRIN [Concomitant]
  6. PRILOSEC [Concomitant]
  7. ZANTAC [Concomitant]
  8. ADVAIR DISKUS 100/50 [Concomitant]
  9. ALLEGRA [Concomitant]

REACTIONS (1)
  - DYSPHONIA [None]
